FAERS Safety Report 14160887 (Version 1)
Quarter: 2017Q4

REPORT INFORMATION
  Report Type: Other
  Country: CN (occurrence: CN)
  Receive Date: 20171106
  Receipt Date: 20171106
  Transmission Date: 20180321
  Serious: Yes (Hospitalization)
  Sender: FDA-Public Use
  Company Number: CN-ASTELLAS-2017US044896

PATIENT
  Age: 39 Year
  Sex: Male

DRUGS (2)
  1. MYCAMINE [Suspect]
     Active Substance: MICAFUNGIN SODIUM
     Indication: MYELODYSPLASTIC SYNDROME
     Route: 042
     Dates: start: 20170922, end: 20170922
  2. SODIUM CHLORIDE. [Concomitant]
     Active Substance: SODIUM CHLORIDE
     Indication: MYELODYSPLASTIC SYNDROME
     Route: 042
     Dates: start: 20170922, end: 20170922

REACTIONS (10)
  - Haemoglobin decreased [Unknown]
  - Hyperhidrosis [Recovered/Resolved]
  - Body temperature increased [Unknown]
  - Blood pressure increased [Unknown]
  - Haemolysis [Recovering/Resolving]
  - Haematuria [Not Recovered/Not Resolved]
  - Nasopharyngitis [Unknown]
  - Palpitations [Recovered/Resolved]
  - Chest discomfort [Recovered/Resolved]
  - Chills [Recovered/Resolved]

NARRATIVE: CASE EVENT DATE: 20170922
